FAERS Safety Report 8978101 (Version 1)
Quarter: 2012Q4

REPORT INFORMATION
  Report Type: 
  Country: US (occurrence: US)
  Receive Date: 20121220
  Receipt Date: 20121220
  Transmission Date: 20130627
  Serious: No
  Sender: FDA-Public Use
  Company Number: US-009507513-1212USA004815

PATIENT
  Age: 33 Year
  Sex: Female

DRUGS (3)
  1. VICTRELIS [Suspect]
     Dosage: 800 mg, tid
     Route: 048
     Dates: start: 20120523, end: 20120910
  2. RIBAVIRIN [Suspect]
     Dosage: UNK
     Dates: start: 201201, end: 201209
  3. PEGASYS [Suspect]
     Dosage: UNK
     Dates: start: 201204, end: 201209

REACTIONS (4)
  - Malaise [Unknown]
  - Adverse event [Unknown]
  - Movement disorder [Unknown]
  - Irritability [Unknown]
